FAERS Safety Report 15226693 (Version 1)
Quarter: 2018Q3

REPORT INFORMATION
  Report Type: Spontaneous
  Country: US (occurrence: US)
  Receive Date: 20180801
  Receipt Date: 20180801
  Transmission Date: 20181010
  Serious: No
  Sender: FDA-Public Use
  Company Number: US-SA-2018SA207253

PATIENT
  Sex: Female
  Weight: 81.6 kg

DRUGS (11)
  1. ALIROCUMAB PREFILLED PEN [Suspect]
     Active Substance: ALIROCUMAB
     Indication: HYPERLIPIDAEMIA
     Dosage: UNK UNK, QOW
     Route: 058
  2. CLARITINE [Concomitant]
     Active Substance: LORATADINE
  3. ISOSORBIDE MONONITRATE. [Concomitant]
     Active Substance: ISOSORBIDE MONONITRATE
  4. TECFIDERA [Concomitant]
     Active Substance: DIMETHYL FUMARATE
  5. RANEXA [Concomitant]
     Active Substance: RANOLAZINE
  6. LIVALO [Concomitant]
     Active Substance: PITAVASTATIN CALCIUM
  7. PRALUENT [Suspect]
     Active Substance: ALIROCUMAB
     Indication: HYPERLIPIDAEMIA
     Dosage: UNK UNK, QOW
     Route: 058
  8. AMBIEN [Concomitant]
     Active Substance: ZOLPIDEM TARTRATE
  9. COENZYME Q10 [Concomitant]
     Active Substance: UBIDECARENONE
  10. ASPIRIN EC [Concomitant]
     Active Substance: ASPIRIN
  11. HYDROCHLOROTHIAZIDE. [Concomitant]
     Active Substance: HYDROCHLOROTHIAZIDE

REACTIONS (1)
  - White blood cell count decreased [Unknown]
